FAERS Safety Report 6911621-6 (Version None)
Quarter: 2010Q3

REPORT INFORMATION
  Report Type: 
  Country: None (occurrence: None)
  Receive Date: 20100806
  Receipt Date: 20100724
  Transmission Date: 20110219
  Serious: Yes (Other)
  Sender: FDA-Public Use
  Company Number: GB-BAYER-201034446GPV

PATIENT
  Age: 42 Year
  Sex: Female

DRUGS (10)
  1. LEVONORGESTREL BEARING IUS [Suspect]
     Indication: HORMONE REPLACEMENT THERAPY
  2. VENLAFAXINE [Concomitant]
     Indication: SUICIDAL IDEATION
     Dosage: MAXIMAL LEVEL
  3. LITHIUM [Concomitant]
     Indication: SUICIDAL IDEATION
  4. MIRTAZAPINE [Concomitant]
     Indication: SUICIDAL IDEATION
  5. VALPROATE SODIUM [Concomitant]
     Indication: SUICIDAL IDEATION
  6. ESTRADIOL [Concomitant]
     Indication: HORMONE REPLACEMENT THERAPY
  7. ESTRADIOL [Concomitant]
     Dosage: VAGINAL
  8. ESTRADIOL [Concomitant]
  9. ESTRADIOL [Concomitant]
     Dosage: UNIT DOSE: 100 ?G
  10. TRANEXAMIC ACID [Concomitant]
     Indication: VAGINAL HAEMORRHAGE

REACTIONS (1)
  - DEPRESSION SUICIDAL [None]
